FAERS Safety Report 5303634-5 (Version None)
Quarter: 2007Q2

REPORT INFORMATION
  Report Type: 
  Country: None (occurrence: None)
  Receive Date: 20070420
  Receipt Date: 20070411
  Transmission Date: 20071010
  Serious: Yes (Other)
  Sender: FDA-Public Use
  Company Number: BR-SHR-BR-2007-013394

PATIENT
  Age: 43 Year
  Sex: Female
  Weight: 51 kg

DRUGS (1)
  1. MIRENA [Suspect]
     Indication: ENDOMETRIOSIS
     Dosage: 20 A?G/DAY, CONT
     Route: 015
     Dates: start: 20061128

REACTIONS (5)
  - HYPOMENORRHOEA [None]
  - IUCD COMPLICATION [None]
  - OVARIAN CYST [None]
  - POLYMENORRHOEA [None]
  - UTERINE ENLARGEMENT [None]
